FAERS Safety Report 8813124 (Version 1)
Quarter: 2012Q4

REPORT INFORMATION
  Report Type: 
  Country: US (occurrence: US)
  Receive Date: 20120927
  Receipt Date: 20120927
  Transmission Date: 20130627
  Serious: No
  Sender: FDA-Public Use
  Company Number: US-AMGEN-USASP2012041603

PATIENT
  Sex: Female

DRUGS (3)
  1. PROLIA [Suspect]
     Indication: OSTEOPOROSIS POSTMENOPAUSAL
     Dosage: 60 mg, q6mo
     Dates: start: 20120605
  2. OSCAL                              /00514701/ [Concomitant]
  3. VITAMIN 15 [Concomitant]

REACTIONS (5)
  - Chills [Unknown]
  - Gait disturbance [Unknown]
  - Insomnia [Unknown]
  - Arthralgia [Unknown]
  - Pain in extremity [Recovering/Resolving]
